FAERS Safety Report 6300603-3 (Version None)
Quarter: 2009Q3

REPORT INFORMATION
  Report Type: 
  Country: None (occurrence: None)
  Receive Date: 20090806
  Receipt Date: 20090612
  Transmission Date: 20100115
  Serious: Yes (Other)
  Sender: FDA-Public Use
  Company Number: US-ABBOTT-09P-163-0579561-00

PATIENT
  Sex: Female
  Weight: 65.376 kg

DRUGS (5)
  1. DEPAKOTE ER [Suspect]
     Indication: EPILEPSY
     Dates: start: 19790101, end: 20080901
  2. VALPROIC ACID [Suspect]
     Indication: EPILEPSY
     Dates: start: 20090301
  3. DIVALPROEX SODIUM [Suspect]
     Indication: EPILEPSY
     Dates: start: 20090601
  4. KEPPRA [Concomitant]
     Indication: EPILEPSY
     Dates: start: 20080901
  5. DILANTIN [Concomitant]
     Indication: EPILEPSY
     Dates: start: 20090301

REACTIONS (1)
  - CONVULSION [None]
